FAERS Safety Report 19491078 (Version 3)
Quarter: 2021Q4

REPORT INFORMATION
  Report Type: Other
  Country: US (occurrence: None)
  Receive Date: 20210705
  Receipt Date: 20211101
  Transmission Date: 20220303
  Serious: Yes (Hospitalization)
  Sender: FDA-Public Use
  Company Number: US-ROCHE-2859892

PATIENT
  Sex: Male

DRUGS (2)
  1. PEGASYS [Suspect]
     Active Substance: PEGINTERFERON ALFA-2A
     Indication: Myeloproliferative neoplasm
     Dosage: FORM STRENGTH: 180 MCG/ML?INJECT 0.25ML (45MCG) SUBCUTANEOUSLY EVERY WEEK
     Route: 058
  2. PEGASYS [Suspect]
     Active Substance: PEGINTERFERON ALFA-2A
     Indication: Essential thrombocythaemia
     Dosage: INJECT 45MCG SUBCUTANEOUSLY ONCE EVERY WEEK?VIAL
     Route: 058

REACTIONS (2)
  - Illness [Unknown]
  - Off label use [Unknown]
